FAERS Safety Report 15896707 (Version 1)
Quarter: 2019Q1

REPORT INFORMATION
  Report Type: Spontaneous
  Country: ES (occurrence: ES)
  Receive Date: 20190131
  Receipt Date: 20190131
  Transmission Date: 20190417
  Serious: Yes (Hospitalization)
  Sender: FDA-Public Use
  Company Number: ES-TEVA-2019-ES-1005139

PATIENT
  Age: 57 Year
  Sex: Male

DRUGS (2)
  1. PRAMIPEXOL (2787A) [Suspect]
     Active Substance: PRAMIPEXOLE
     Indication: PARKINSON^S DISEASE
     Dosage: 2.1 MILLIGRAM DAILY;  0-0-1
     Route: 048
     Dates: start: 20170303, end: 20170622
  2. ENALAPRIL (2142A) [Concomitant]
     Active Substance: ENALAPRIL
     Indication: HYPERTENSION
     Dosage: 1-0-0
     Route: 048
     Dates: start: 20150223

REACTIONS (2)
  - Hyponatraemia [Recovered/Resolved]
  - Hyperthermia [Recovered/Resolved]

NARRATIVE: CASE EVENT DATE: 20170622
